FAERS Safety Report 7484055-6 (Version None)
Quarter: 2011Q1

REPORT INFORMATION
  Report Type: 
  Country: None (occurrence: None)
  Receive Date: 20110309
  Receipt Date: 20110203
  Transmission Date: 20110831
  Serious: No
  Sender: FDA-Public Use
  Company Number: 2011SP005659

PATIENT

DRUGS (1)
  1. SAPHRIS [Suspect]
     Indication: PRODUCT USED FOR UNKNOWN INDICATION
     Dosage: HS; SL
     Route: 060

REACTIONS (2)
  - HUNGER [None]
  - INAPPROPRIATE SCHEDULE OF DRUG ADMINISTRATION [None]
